FAERS Safety Report 21646128 (Version 2)
Quarter: 2023Q1

REPORT INFORMATION
  Report Type: Report from Study
  Country: US (occurrence: US)
  Receive Date: 20221126
  Receipt Date: 20230104
  Transmission Date: 20230417
  Serious: No
  Sender: FDA-Public Use
  Company Number: US-ABBVIE-4179649

PATIENT
  Age: 50 Year
  Sex: Female

DRUGS (1)
  1. RINVOQ [Suspect]
     Active Substance: UPADACITINIB
     Indication: Rheumatoid arthritis
     Route: 048
     Dates: start: 20220911, end: 202210

REACTIONS (13)
  - Swelling [Unknown]
  - Rheumatoid arthritis [Recovered/Resolved]
  - Neck pain [Unknown]
  - Nasal congestion [Recovering/Resolving]
  - Headache [Recovering/Resolving]
  - Nasal discomfort [Recovering/Resolving]
  - Chest pain [Unknown]
  - Drug ineffective [Unknown]
  - Chest discomfort [Unknown]
  - Anxiety [Unknown]
  - Frustration tolerance decreased [Unknown]
  - Loss of personal independence in daily activities [Unknown]
  - Pain [Unknown]

NARRATIVE: CASE EVENT DATE: 20221011
